FAERS Safety Report 16145409 (Version 1)
Quarter: 2019Q2

REPORT INFORMATION
  Report Type: Spontaneous
  Country: US (occurrence: US)
  Receive Date: 20190402
  Receipt Date: 20190402
  Transmission Date: 20190711
  Serious: No
  Sender: FDA-Public Use
  Company Number: US-TEVA-2019-US-1021980

PATIENT
  Age: 76 Year
  Sex: Female

DRUGS (3)
  1. NICOTINE POLACRILEX [Suspect]
     Active Substance: NICOTINE
     Route: 065
  2. NICOTINE POLACRILEX [Suspect]
     Active Substance: NICOTINE
     Route: 065
     Dates: start: 201902
  3. NICOTINE POLACRILEX [Suspect]
     Active Substance: NICOTINE
     Indication: EX-TOBACCO USER
     Dosage: GUM
     Route: 065
     Dates: start: 201902, end: 201902

REACTIONS (5)
  - Product taste abnormal [Unknown]
  - Application site rash [Recovered/Resolved]
  - Retching [Recovered/Resolved]
  - Product adhesion issue [Unknown]
  - Expired product administered [Unknown]

NARRATIVE: CASE EVENT DATE: 201902
